FAERS Safety Report 8440080-X (Version None)
Quarter: 2012Q2

REPORT INFORMATION
  Report Type: 
  Country: None (occurrence: None)
  Receive Date: 20120615
  Receipt Date: 20120607
  Transmission Date: 20120825
  Serious: Yes (Death)
  Sender: FDA-Public Use
  Company Number: CA-ELI_LILLY_AND_COMPANY-CA201206002721

PATIENT
  Age: 80 Year
  Sex: Female

DRUGS (7)
  1. LEUCOVORIN CALCIUM [Concomitant]
     Dosage: UNK
     Route: 065
  2. VITAMIN D [Concomitant]
     Dosage: UNK
     Route: 065
  3. FORTEO [Suspect]
     Indication: OSTEOPOROSIS
     Dosage: 20 UG, QD
     Route: 058
     Dates: start: 20110704, end: 20120501
  4. CORTISONE ACETATE [Concomitant]
     Dosage: UNK
     Route: 065
  5. SYNTHROID [Concomitant]
     Dosage: UNK
     Route: 065
  6. TEMAZEPAM [Concomitant]
     Dosage: UNK
     Route: 065
  7. METHOTREXATE [Concomitant]
     Dosage: UNK
     Route: 065

REACTIONS (1)
  - DEATH [None]
